FAERS Safety Report 11393924 (Version 1)
Quarter: 2015Q3

REPORT INFORMATION
  Report Type: Spontaneous
  Country: US (occurrence: None)
  Receive Date: 20150817
  Receipt Date: 20150817
  Transmission Date: 20151125
  Serious: Yes (Death, Hospitalization)
  Sender: FDA-Public Use
  Company Number: CPI 7017

PATIENT
  Age: 23 Year
  Sex: Female

DRUGS (1)
  1. N-ACETYLCYSTEINE [Suspect]
     Active Substance: ACETYLCYSTEINE
     Indication: OVERDOSE
     Route: 042

REACTIONS (26)
  - Vomiting [None]
  - Dyspnoea [None]
  - Pulse absent [None]
  - Metabolic acidosis [None]
  - Drug resistance [None]
  - Tachypnoea [None]
  - Mydriasis [None]
  - Hypernatraemia [None]
  - Lethargy [None]
  - Dizziness [None]
  - Hypotension [None]
  - Hypopnoea [None]
  - Oliguria [None]
  - Asthenia [None]
  - Agitation [None]
  - Nausea [None]
  - Somnolence [None]
  - Periorbital oedema [None]
  - Depressed level of consciousness [None]
  - Respiratory alkalosis [None]
  - Generalised oedema [None]
  - Increased bronchial secretion [None]
  - Blood creatinine increased [None]
  - Drug hypersensitivity [None]
  - Brain oedema [None]
  - Blood urine [None]

NARRATIVE: CASE EVENT DATE: 2015
